FAERS Safety Report 6542886-0 (Version None)
Quarter: 2010Q1

REPORT INFORMATION
  Report Type: 
  Country: None (occurrence: None)
  Receive Date: 20100120
  Receipt Date: 20100107
  Transmission Date: 20100710
  Serious: Yes (Hospitalization, Other)
  Sender: FDA-Public Use
  Company Number: US-RANBAXY-2010US-30397

PATIENT

DRUGS (3)
  1. ACETAMINOPHEN [Suspect]
     Indication: CANCER PAIN
     Dosage: 650 MG, 6 TABS/DAY
     Route: 048
     Dates: start: 20090101
  2. TRAMADOL [Suspect]
     Indication: CANCER PAIN
     Dosage: 50 MG, PRN
     Route: 048
     Dates: start: 20100106
  3. MORPHINE [Suspect]
     Indication: NEOPLASM MALIGNANT
     Dosage: 20 MG, BID
     Route: 048
     Dates: start: 20090101

REACTIONS (3)
  - AGGRESSION [None]
  - HALLUCINATION [None]
  - PERSONALITY CHANGE [None]
